FAERS Safety Report 5506473-5 (Version None)
Quarter: 2007Q4

REPORT INFORMATION
  Report Type: 
  Country: None (occurrence: None)
  Receive Date: 20071101
  Receipt Date: 20071016
  Transmission Date: 20080405
  Serious: Yes (Death, Life-Threatening, Other)
  Sender: FDA-Public Use
  Company Number: 2007US002638

PATIENT
  Age: 52 Year
  Sex: Male

DRUGS (16)
  1. AMBISOME [Suspect]
     Indication: FEBRILE NEUTROPENIA
     Dosage: 250 MG, UID/QD, IV DRIP; 150 MBQ, UID/QD, IV DRIP
     Route: 041
     Dates: start: 20070714, end: 20070718
  2. AMBISOME [Suspect]
     Indication: FEBRILE NEUTROPENIA
     Dosage: 250 MG, UID/QD, IV DRIP; 150 MBQ, UID/QD, IV DRIP
     Route: 041
     Dates: start: 20070719, end: 20070720
  3. VANCOMYCIN HYDROCHLORIDE [Suspect]
     Indication: DRUG USE FOR UNKNOWN INDICATION
     Dosage: 2 G, UID/QD, IV DRIP
     Route: 041
     Dates: start: 20070710, end: 20070716
  4. AMIKACIN SULFATE [Suspect]
     Indication: DRUG USE FOR UNKNOWN INDICATION
     Dosage: 400 MG, UID/QD,
     Dates: start: 20070717, end: 20070721
  5. KALETRA [Concomitant]
  6. ZERIT [Concomitant]
  7. EPIVIR [Concomitant]
  8. ITRACONAZOLE [Concomitant]
  9. ALLOPURINOL [Concomitant]
  10. ACYCLOVIR [Concomitant]
  11. PLATELETS [Concomitant]
  12. CEFTAZIDIME [Concomitant]
  13. NEUPOGEN [Concomitant]
  14. RED BLOOD CELLS, LEUCOCYTE DEPLETED (RED BLOOD CELLS, LEUCOCYTE DEPELE [Concomitant]
  15. ZYVOX [Concomitant]
  16. POTASSIUM CHLORIDE [Concomitant]

REACTIONS (3)
  - HYPOKALAEMIA [None]
  - RENAL IMPAIRMENT [None]
  - SEPSIS [None]
